FAERS Safety Report 17186645 (Version 1)
Quarter: 2019Q4

REPORT INFORMATION
  Report Type: Spontaneous
  Country: JP (occurrence: JP)
  Receive Date: 20191220
  Receipt Date: 20191220
  Transmission Date: 20200122
  Serious: Yes (Other)
  Sender: FDA-Public Use
  Company Number: JP-HONG KONG KING-FRIEND INDUSTRIAL COMPANY-2019NKF00040

PATIENT
  Sex: Female

DRUGS (2)
  1. ASPIRIN. [Concomitant]
     Active Substance: ASPIRIN
     Dosage: (^LOW DOSE^)
     Route: 065
  2. HEPARIN SODIUM. [Suspect]
     Active Substance: HEPARIN SODIUM
     Indication: ANTIPHOSPHOLIPID SYNDROME
     Dosage: 5000 U, 2X/DAY
     Route: 058

REACTIONS (3)
  - Exposure during pregnancy [Unknown]
  - Stillbirth [Recovered/Resolved]
  - Heparin-induced thrombocytopenia [Unknown]
